FAERS Safety Report 23545749 (Version 1)
Quarter: 2024Q1

REPORT INFORMATION
  Report Type: Report from Study
  Country: CO (occurrence: CO)
  Receive Date: 20240220
  Receipt Date: 20240220
  Transmission Date: 20240410
  Serious: Yes (Death)
  Sender: FDA-Public Use
  Company Number: CO-BAYER-2024A027104

PATIENT
  Age: 90 Year
  Sex: Female

DRUGS (2)
  1. ADEMPAS [Suspect]
     Active Substance: RIOCIGUAT
     Indication: Pulmonary hypertension
     Dosage: 2.5 MG
     Dates: start: 20161118, end: 202402
  2. VENTAVIS [Suspect]
     Active Substance: ILOPROST
     Dosage: 5 ?G, 6ID
     Route: 055
     Dates: start: 20191203, end: 202402

REACTIONS (1)
  - Death [Fatal]

NARRATIVE: CASE EVENT DATE: 20240201
